FAERS Safety Report 9499174 (Version 1)
Quarter: 2013Q3

REPORT INFORMATION
  Report Type: Spontaneous
  Country: US (occurrence: US)
  Receive Date: 20130905
  Receipt Date: 20130905
  Transmission Date: 20140515
  Serious: No
  Sender: FDA-Public Use
  Company Number: US-009507513-1308USA013246

PATIENT
  Age: 54 Year
  Sex: Female

DRUGS (1)
  1. NASONEX [Suspect]
     Dosage: 2 DF, TID
     Route: 045
     Dates: start: 201108

REACTIONS (2)
  - Epistaxis [Not Recovered/Not Resolved]
  - Inappropriate schedule of drug administration [Unknown]
